FAERS Safety Report 4546406-1 (Version None)
Quarter: 2005Q1

REPORT INFORMATION
  Report Type: 
  Country: None (occurrence: None)
  Receive Date: 20050103
  Receipt Date: 20041221
  Transmission Date: 20050727
  Serious: Yes (Hospitalization, Disabling, Other)
  Sender: FDA-Public Use
  Company Number: 2004110372

PATIENT
  Age: 24 Year
  Sex: Female
  Weight: 68 kg

DRUGS (4)
  1. DEPO-PROVERA [Suspect]
     Indication: CONTRACEPTION
     Dosage: 1ST INJECTION, INTRAMUSCULAR, MOST RECENT INJECTION, INTRAMUSCULAR
     Route: 030
     Dates: start: 20030624, end: 20030624
  2. DEPO-PROVERA [Suspect]
     Indication: CONTRACEPTION
     Dosage: 1ST INJECTION, INTRAMUSCULAR, MOST RECENT INJECTION, INTRAMUSCULAR
     Route: 030
     Dates: start: 20041013, end: 20041013
  3. AZATHIOPRINE [Concomitant]
  4. MESALAMINE [Concomitant]

REACTIONS (1)
  - INJECTION SITE ABSCESS [None]
